FAERS Safety Report 5806456-1 (Version None)
Quarter: 2008Q3

REPORT INFORMATION
  Report Type: 
  Country: None (occurrence: None)
  Receive Date: 20080710
  Receipt Date: 20080629
  Transmission Date: 20090109
  Serious: Yes (Other)
  Sender: FDA-Public Use
  Company Number: US-PFIZER INC-2008054724

PATIENT
  Age: 2 Year
  Sex: Female

DRUGS (1)
  1. XALATAN [Suspect]

REACTIONS (2)
  - ACCIDENTAL EXPOSURE [None]
  - SOMNOLENCE [None]
